FAERS Safety Report 18930620 (Version 2)
Quarter: 2021Q1

REPORT INFORMATION
  Report Type: Not Available
  Country: US (occurrence: US)
  Receive Date: 20210224
  Receipt Date: 20210307
  Transmission Date: 20210420
  Serious: No
  Sender: FDA-Public Use
  Company Number: US-NEUROCRINE BIOSCIENCES INC.-2021NBI00688

PATIENT
  Age: 76 Year
  Sex: Male

DRUGS (1)
  1. INGREZZA [Suspect]
     Active Substance: VALBENAZINE
     Indication: TARDIVE DYSKINESIA
     Route: 048
     Dates: start: 20210122, end: 2021

REACTIONS (8)
  - Tardive dyskinesia [Unknown]
  - Muscular weakness [Unknown]
  - Amnesia [Unknown]
  - Drooling [Unknown]
  - Drug ineffective [Unknown]
  - Fall [Unknown]
  - Confusional state [Unknown]
  - Myalgia [Unknown]

NARRATIVE: CASE EVENT DATE: 2021
